FAERS Safety Report 9452269 (Version 1)
Quarter: 2013Q3

REPORT INFORMATION
  Report Type: Spontaneous
  Country: US (occurrence: US)
  Receive Date: 20130812
  Receipt Date: 20130812
  Transmission Date: 20140515
  Serious: No
  Sender: FDA-Public Use
  Company Number: US-009507513-1303USA010633

PATIENT
  Age: 8 Year
  Sex: Male

DRUGS (2)
  1. MIRALAX [Suspect]
     Indication: ENDOSCOPY
     Dosage: UNK, UNKNOWN
     Route: 048
  2. MIRALAX [Suspect]
     Indication: COLONOSCOPY

REACTIONS (2)
  - Drug administered to patient of inappropriate age [Unknown]
  - Off label use [Unknown]
